FAERS Safety Report 8446475-2 (Version None)
Quarter: 2012Q2

REPORT INFORMATION
  Report Type: 
  Country: None (occurrence: None)
  Receive Date: 20120618
  Receipt Date: 20120406
  Transmission Date: 20120825
  Serious: Yes (Other)
  Sender: FDA-Public Use
  Company Number: US-TEVA-332283USA

PATIENT
  Sex: Male
  Weight: 81.72 kg

DRUGS (10)
  1. VENLAFAXINE HCL [Concomitant]
     Dosage: 75 MILLIGRAM;
     Route: 048
  2. ZOLPIDEM [Concomitant]
     Indication: INSOMNIA
     Route: 048
  3. GABAPENTIN [Concomitant]
     Indication: NEUROPATHY PERIPHERAL
  4. ACTIQ [Suspect]
     Indication: NECK PAIN
     Dosage: 1 DAY (RARELY 2)
     Route: 002
     Dates: start: 20020101
  5. ELETRIPTAN HYDROBROMIDE [Concomitant]
     Indication: MIGRAINE
     Dosage: 40 MILLIGRAM;
     Route: 048
  6. VENLAFAXINE HCL [Concomitant]
     Indication: DEPRESSION
     Dosage: 37.5 MILLIGRAM;
     Route: 048
  7. SUMATRIPTAN [Concomitant]
     Indication: MIGRAINE
     Route: 048
  8. GABAPENTIN [Concomitant]
     Indication: PAIN IN EXTREMITY
     Dosage: 300 MILLIGRAM;
     Route: 048
  9. OXYCODONE HCL [Concomitant]
     Indication: NECK PAIN
     Dosage: 30 MILLIGRAM; TAKES 60MG
     Route: 048
  10. WARFARIN SODIUM [Concomitant]
     Indication: THROMBOSIS
     Dosage: 15 MILLIGRAM;
     Route: 048
     Dates: start: 20090101

REACTIONS (5)
  - PAIN [None]
  - HYPERHIDROSIS [None]
  - WITHDRAWAL SYNDROME [None]
  - OFF LABEL USE [None]
  - TREMOR [None]
